FAERS Safety Report 9001196 (Version 3)
Quarter: 2013Q1

REPORT INFORMATION
  Report Type: Spontaneous
  Country: JP (occurrence: JP)
  Receive Date: 20130107
  Receipt Date: 20130221
  Transmission Date: 20140127
  Serious: Yes (Other)
  Sender: FDA-Public Use
  Company Number: JP-JNJFOC-20121213871

PATIENT
  Age: 52 Year
  Sex: Female

DRUGS (7)
  1. ITRIZOLE [Suspect]
     Indication: KERATITIS
     Route: 048
  2. ITRACONAZOLE [Suspect]
     Indication: KERATITIS
     Route: 065
  3. VORICONAZOLE [Suspect]
     Indication: KERATITIS
     Route: 065
  4. VORICONAZOLE [Suspect]
     Indication: KERATITIS
     Route: 047
  5. MICAFUNGIN SODIUM [Suspect]
     Indication: KERATITIS
     Route: 047
  6. NATAMYCIN [Suspect]
     Indication: KERATITIS
     Route: 047
  7. AMPHOTERICIN B [Suspect]
     Indication: KERATITIS
     Route: 047

REACTIONS (4)
  - Corneal epithelium defect [Unknown]
  - Hypopyon [Unknown]
  - Ulcerative keratitis [Unknown]
  - Liver disorder [Unknown]
